FAERS Safety Report 23569736 (Version 2)
Quarter: 2024Q1

REPORT INFORMATION
  Report Type: Spontaneous
  Country: US (occurrence: US)
  Receive Date: 20240227
  Receipt Date: 20240311
  Transmission Date: 20240409
  Serious: Yes (Other)
  Sender: FDA-Public Use
  Company Number: US-MYLANLABS-2024M1017527

PATIENT
  Age: 51 Year
  Sex: Female

DRUGS (5)
  1. HYDROCORTISONE [Suspect]
     Active Substance: HYDROCORTISONE
     Indication: Rash
     Dosage: UNK, BID (1 IN 12 H- 2)
     Route: 061
  2. IMIQUIMOD [Suspect]
     Active Substance: IMIQUIMOD
     Indication: Sarcoidosis
     Dosage: UNK, 3XW
     Route: 065
  3. IMIQUIMOD [Suspect]
     Active Substance: IMIQUIMOD
     Dosage: UNK, QW
     Route: 065
  4. IMIQUIMOD [Suspect]
     Active Substance: IMIQUIMOD
     Dosage: UNK (FINGER TIP DOSE (1 IN 0.33 WK))
     Route: 061
  5. IMIQUIMOD [Suspect]
     Active Substance: IMIQUIMOD
     Dosage: UNK (FINGER TIP DOSE (1 IN 12 HR))
     Route: 061

REACTIONS (6)
  - Skin papilloma [Unknown]
  - Cutaneous sarcoidosis [Unknown]
  - Papilloma viral infection [Unknown]
  - Skin infection [Unknown]
  - Application site irritation [Recovered/Resolved]
  - Therapy non-responder [Unknown]
